FAERS Safety Report 20751017 (Version 1)
Quarter: 2022Q2

REPORT INFORMATION
  Report Type: Spontaneous
  Country: US (occurrence: None)
  Receive Date: 20220426
  Receipt Date: 20220426
  Transmission Date: 20220721
  Serious: Yes (Hospitalization)
  Sender: FDA-Public Use
  Company Number: None

PATIENT
  Age: 33 Year
  Sex: Male
  Weight: 83.25 kg

DRUGS (1)
  1. .DELTA.9-TETRAHYDROCANNABINOL\CANNABIDIOL\HERBALS [Suspect]
     Active Substance: .DELTA.9-TETRAHYDROCANNABINOL\CANNABIDIOL\HERBALS
     Dosage: OTHER QUANTITY : 1 INHALATION(S);?OTHER ROUTE : SMOKE;?
     Route: 050
     Dates: start: 20220421, end: 20220421

REACTIONS (9)
  - Malaise [None]
  - Taste disorder [None]
  - Burning sensation [None]
  - Chest pain [None]
  - Pulmonary pain [None]
  - Cough [None]
  - Chills [None]
  - Paraesthesia [None]
  - Pleurisy [None]

NARRATIVE: CASE EVENT DATE: 20220421
